FAERS Safety Report 10468758 (Version 2)
Quarter: 2014Q4

REPORT INFORMATION
  Report Type: Spontaneous
  Country: FR (occurrence: FR)
  Receive Date: 20140923
  Receipt Date: 20141007
  Transmission Date: 20150528
  Serious: Yes (Death, Life-Threatening)
  Sender: FDA-Public Use
  Company Number: FR-ROCHE-1464885

PATIENT
  Age: 77 Year
  Sex: Male

DRUGS (8)
  1. ACTILYSE [Suspect]
     Active Substance: ALTEPLASE
     Indication: ISCHAEMIC STROKE
     Route: 042
     Dates: start: 20130625, end: 20130625
  2. AUGMENTIN [Concomitant]
     Active Substance: AMOXICILLIN\CLAVULANATE POTASSIUM
  3. INEXIUM [Concomitant]
     Active Substance: ESOMEPRAZOLE
  4. ASPIRINE [Suspect]
     Active Substance: ASPIRIN
     Indication: PRODUCT USED FOR UNKNOWN INDICATION
     Route: 065
     Dates: start: 20130625
  5. ATACAND [Concomitant]
     Active Substance: CANDESARTAN CILEXETIL
  6. FOSAVANCE [Concomitant]
     Active Substance: ALENDRONATE SODIUM\CHOLECALCIFEROL
  7. XATRAL [Concomitant]
     Active Substance: ALFUZOSIN
  8. AVODART [Concomitant]
     Active Substance: DUTASTERIDE

REACTIONS (4)
  - Haemorrhage [Not Recovered/Not Resolved]
  - Pulmonary embolism [None]
  - Acute coronary syndrome [Not Recovered/Not Resolved]
  - Lung disorder [Fatal]

NARRATIVE: CASE EVENT DATE: 20130628
